FAERS Safety Report 20972294 (Version 1)
Quarter: 2022Q2

REPORT INFORMATION
  Report Type: Spontaneous
  Country: JP (occurrence: JP)
  Receive Date: 20220616
  Receipt Date: 20220616
  Transmission Date: 20220721
  Serious: Yes (Other)
  Sender: FDA-Public Use
  Company Number: JP-UCBSA-2022032850

PATIENT
  Age: 7 Year
  Sex: Male

DRUGS (5)
  1. LEVETIRACETAM [Suspect]
     Active Substance: LEVETIRACETAM
     Indication: Lennox-Gastaut syndrome
     Dosage: UNKNOWN DOSE
     Route: 048
  2. LEVETIRACETAM [Suspect]
     Active Substance: LEVETIRACETAM
     Indication: Off label use
  3. CARBAMAZEPINE [Suspect]
     Active Substance: CARBAMAZEPINE
     Indication: Lennox-Gastaut syndrome
     Dosage: UNKNOWN DOSE
  4. PERAMPANEL [Suspect]
     Active Substance: PERAMPANEL
     Indication: Lennox-Gastaut syndrome
     Dosage: UNKNOWN DOSE
  5. VALPROATE SODIUM [Concomitant]
     Active Substance: VALPROATE SODIUM
     Indication: Lennox-Gastaut syndrome
     Dosage: UNKNOWN DOSE

REACTIONS (7)
  - Dropped head syndrome [Unknown]
  - Seizure [Recovering/Resolving]
  - Fall [Unknown]
  - Face injury [Unknown]
  - Aggression [Recovering/Resolving]
  - Atonic seizures [Recovered/Resolved]
  - Off label use [Unknown]
